FAERS Safety Report 6901871-7 (Version None)
Quarter: 2010Q3

REPORT INFORMATION
  Report Type: 
  Country: None (occurrence: None)
  Receive Date: 20100803
  Receipt Date: 20080325
  Transmission Date: 20110219
  Serious: Yes (Other)
  Sender: FDA-Public Use
  Company Number: US-PFIZER INC-2008027183

PATIENT
  Sex: Female
  Weight: 63.5 kg

DRUGS (12)
  1. LYRICA [Suspect]
     Indication: NECK PAIN
     Dates: start: 20080301
  2. NEXIUM [Concomitant]
  3. LORATADINE W/PSEUDOEPHEDRINE [Concomitant]
  4. MONTELUKAST SODIUM [Concomitant]
  5. NORTRIPTYLINE [Concomitant]
  6. WELLBUTRIN [Concomitant]
  7. MULTI-VITAMINS [Concomitant]
  8. MIRALAX [Concomitant]
  9. MUCINEX [Concomitant]
  10. CONTRACEPTIVE, UNSPECIFIED [Concomitant]
  11. FLAXSEED OIL [Concomitant]
  12. LOVAZA [Concomitant]

REACTIONS (2)
  - EYE PRURITUS [None]
  - WEIGHT INCREASED [None]
